FAERS Safety Report 5758919-5 (Version None)
Quarter: 2008Q2

REPORT INFORMATION
  Report Type: 
  Country: None (occurrence: None)
  Receive Date: 20080603
  Receipt Date: 20080603
  Transmission Date: 20081010
  Serious: Yes (Life-Threatening, Other)
  Sender: FDA-Public Use
  Company Number: None

PATIENT
  Age: 32 Year
  Sex: Female
  Weight: 66.6788 kg

DRUGS (1)
  1. SINGULAIR [Suspect]
     Indication: HYPERSENSITIVITY
     Dosage: 1 10 MG PILL ONE PER DAY PO
     Route: 048
     Dates: start: 20040501, end: 20080522

REACTIONS (26)
  - ANGER [None]
  - ASTHENIA [None]
  - BURNING SENSATION [None]
  - DEPRESSION [None]
  - DRUG EXPOSURE DURING PREGNANCY [None]
  - FEAR [None]
  - FEELING ABNORMAL [None]
  - GAIT DISTURBANCE [None]
  - GASTRIC PH DECREASED [None]
  - HALLUCINATION, VISUAL [None]
  - INITIAL INSOMNIA [None]
  - MALAISE [None]
  - MIGRAINE [None]
  - MOOD SWINGS [None]
  - MYALGIA [None]
  - NIGHT SWEATS [None]
  - OCCIPITAL NEURALGIA [None]
  - ORAL INTAKE REDUCED [None]
  - PAIN [None]
  - PAIN IN EXTREMITY [None]
  - PAROSMIA [None]
  - SINUSITIS [None]
  - SUICIDAL IDEATION [None]
  - TREMOR [None]
  - TRIGEMINAL NEURALGIA [None]
  - WEIGHT DECREASED [None]
